FAERS Safety Report 4549188-2 (Version None)
Quarter: 2005Q1

REPORT INFORMATION
  Report Type: 
  Country: None (occurrence: None)
  Receive Date: 20050111
  Receipt Date: 20041230
  Transmission Date: 20050727
  Serious: Yes (Other)
  Sender: FDA-Public Use
  Company Number: US-JNJFOC-20050100168

PATIENT
  Sex: Female
  Weight: 81.65 kg

DRUGS (6)
  1. REMICADE [Suspect]
     Route: 042
  2. REMICADE [Suspect]
     Indication: CROHN'S DISEASE
     Route: 042
  3. URSO 250 [Concomitant]
  4. ASACOL [Concomitant]
  5. LIPITOR [Concomitant]
  6. PULMICORT [Concomitant]

REACTIONS (5)
  - ARTHRALGIA [None]
  - ASTHMA [None]
  - SPINAL FUSION SURGERY [None]
  - SWELLING FACE [None]
  - URTICARIA [None]
